FAERS Safety Report 9417791 (Version 1)
Quarter: 2013Q3

REPORT INFORMATION
  Report Type: Spontaneous
  Country: ES (occurrence: ES)
  Receive Date: 20130724
  Receipt Date: 20130724
  Transmission Date: 20140515
  Serious: Yes (Hospitalization)
  Sender: FDA-Public Use
  Company Number: ES-TEVA-419931ISR

PATIENT
  Age: 73 Year
  Sex: Male

DRUGS (3)
  1. EPIRUBICINA [Suspect]
     Indication: ADENOCARCINOMA GASTRIC
     Route: 042
     Dates: start: 20130530, end: 20130530
  2. OXALIPLATINO [Suspect]
     Indication: ADENOCARCINOMA GASTRIC
     Route: 042
     Dates: start: 20130530, end: 20130530
  3. XELODA [Suspect]
     Route: 048
     Dates: start: 20130530, end: 20130530

REACTIONS (1)
  - Enteritis [Recovered/Resolved]
